FAERS Safety Report 22624883 (Version 12)
Quarter: 2025Q3

REPORT INFORMATION
  Report Type: Spontaneous
  Country: KR (occurrence: KR)
  Receive Date: 20230621
  Receipt Date: 20250903
  Transmission Date: 20251020
  Serious: Yes (Hospitalization)
  Sender: PFIZER
  Company Number: KR-PFIZER INC-PV202300106338

PATIENT
  Age: 66 Year
  Sex: Female

DRUGS (28)
  1. LORLATINIB [Suspect]
     Active Substance: LORLATINIB
     Dosage: 25MG 1T, QD
     Route: 048
  2. LORLATINIB [Suspect]
     Active Substance: LORLATINIB
     Route: 048
  3. LORLATINIB [Suspect]
     Active Substance: LORLATINIB
     Route: 048
  4. LORLATINIB [Suspect]
     Active Substance: LORLATINIB
     Dosage: 25 MG, 1X/DAY, FOR 90 DAYS
  5. CODEINE PHOSPHATE [Concomitant]
     Active Substance: CODEINE PHOSPHATE
  6. CRESTOR [Concomitant]
     Active Substance: ROSUVASTATIN CALCIUM
     Dosage: 10MG, ONCE DAILY, FOR 32 DAYS
  7. CRESTOR [Concomitant]
     Active Substance: ROSUVASTATIN CALCIUM
     Dosage: 10 MG, 1X/DAY, FOR 91 DAYS
  8. PROPACETAMOL HYDROCHLORIDE [Concomitant]
     Active Substance: PROPACETAMOL HYDROCHLORIDE
  9. DULACKHAN EASY [Concomitant]
  10. FENTANYL CITRATE [Concomitant]
     Active Substance: FENTANYL CITRATE
  11. HUONS HEPARIN SODIUM [Concomitant]
  12. HUONS LIDOCAINE HCL [Concomitant]
  13. JW NS [Concomitant]
  14. LASIX [Concomitant]
     Active Substance: FUROSEMIDE
     Dosage: 40 MG, 2X/DAY FOR 32 DAYS
  15. LASIX [Concomitant]
     Active Substance: FUROSEMIDE
     Dosage: 40 MG, 2X/DAY FOR A DAY
  16. LASIX [Concomitant]
     Active Substance: FUROSEMIDE
     Dosage: 40 MG, 2X/DAY, FOR 90 DAYS
  17. NEUSTATIN R [Concomitant]
  18. SPIRONOLACTONE [Concomitant]
     Active Substance: SPIRONOLACTONE
     Dosage: 50 MG, 1X/DAY FOR 30 DAYS
  19. SPIRONOLACTONE [Concomitant]
     Active Substance: SPIRONOLACTONE
  20. SPIRONOLACTONE [Concomitant]
     Active Substance: SPIRONOLACTONE
     Dosage: 50 MG, 1X/DAY, FOR 90 DAYS
  21. TRAMADOL HYDROCHLORIDE [Concomitant]
     Active Substance: TRAMADOL HYDROCHLORIDE
  22. TYLENOL 8HR [Concomitant]
     Active Substance: ACETAMINOPHEN
     Dosage: UNK UNK, 3X/DAY
  23. ACTIFED (PSEUDOEPHEDRINE HYDROCHLORIDE\TRIPROLIDINE HYDROCHLORIDE) [Concomitant]
     Active Substance: PSEUDOEPHEDRINE HYDROCHLORIDE\TRIPROLIDINE HYDROCHLORIDE
     Dosage: UNK, 3X/DAY, FOR 3 DAYS
  24. ACTIFED (PSEUDOEPHEDRINE HYDROCHLORIDE\TRIPROLIDINE HYDROCHLORIDE) [Concomitant]
     Active Substance: PSEUDOEPHEDRINE HYDROCHLORIDE\TRIPROLIDINE HYDROCHLORIDE
     Dosage: UNK, 3X/DAY, FOR 5 DAYS
  25. ROXOL [AMBROXOL HYDROCHLORIDE] [Concomitant]
     Dosage: 30 MG, 3X/DAY
  26. ACETYLCYSTEINE [Concomitant]
     Active Substance: ACETYLCYSTEINE
     Dosage: 200 MG, 3X/DAY
  27. ROVAZET [Concomitant]
     Dosage: 1 DF, 1X/DAY, 10/10 MG FOR 91 DAYS
     Route: 048
  28. ADENINE\BIFENDATE\CARNITINE\MAMMAL LIVER\VITAMIN B COMPLEX [Concomitant]
     Active Substance: ADENINE\BIFENDATE\CARNITINE\MAMMAL LIVER\VITAMIN B COMPLEX
     Dosage: UNK, 2X/DAY, FOR 90 DAYS
     Route: 048

REACTIONS (3)
  - Pleural effusion [Recovered/Resolved]
  - Dyspnoea [Unknown]
  - Off label use [Unknown]
